FAERS Safety Report 5018826-2 (Version None)
Quarter: 2006Q2

REPORT INFORMATION
  Report Type: 
  Country: None (occurrence: None)
  Receive Date: 20060531
  Receipt Date: 20060522
  Transmission Date: 20061013
  Serious: Yes (Other)
  Sender: FDA-Public Use
  Company Number: 2006067011

PATIENT
  Sex: Male

DRUGS (1)
  1. NATURAL CITRUS LISTERINE [Suspect]
     Dosage: WHOLE 1.0 LITER BOTTLE, ORAL
     Route: 048

REACTIONS (1)
  - INCORRECT DOSE ADMINISTERED [None]
